FAERS Safety Report 6481096-2 (Version None)
Quarter: 2009Q4

REPORT INFORMATION
  Report Type: 
  Country: None (occurrence: None)
  Receive Date: 20091203
  Receipt Date: 20091120
  Transmission Date: 20100525
  Serious: Yes (Other)
  Sender: FDA-Public Use
  Company Number: 1000010481

PATIENT
  Age: 14 Year
  Sex: Female

DRUGS (1)
  1. ESCITALOPRAM [Suspect]
     Indication: PANIC ATTACK
     Dosage: (5 MG), ORAL
     Route: 048
     Dates: start: 20091101, end: 20091101

REACTIONS (1)
  - TONGUE DISORDER [None]
